FAERS Safety Report 4293101-2 (Version None)
Quarter: 2004Q1

REPORT INFORMATION
  Report Type: 
  Country: None (occurrence: None)
  Receive Date: 20040212
  Receipt Date: 20021227
  Transmission Date: 20041129
  Serious: No
  Sender: FDA-Public Use
  Company Number: US-GLAXOSMITHKLINE-A0390412A

PATIENT
  Age: 51 Year
  Sex: Female

DRUGS (8)
  1. PAXIL [Suspect]
     Indication: ANXIETY
     Route: 048
     Dates: start: 20020930, end: 20021223
  2. SYNTHROID [Concomitant]
     Dosage: 88MCG PER DAY
  3. CALCIUM [Concomitant]
     Dosage: 800MG PER DAY
  4. VITAMIN E [Concomitant]
     Dosage: 400IU PER DAY
  5. TUMS [Concomitant]
  6. ONE A DAY VITAMIN [Concomitant]
  7. BIOPROTECT [Concomitant]
  8. BIO C PLUS [Concomitant]

REACTIONS (6)
  - DISTURBANCE IN ATTENTION [None]
  - DIZZINESS [None]
  - FATIGUE [None]
  - NAUSEA [None]
  - PERIPHERAL COLDNESS [None]
  - SEXUAL DYSFUNCTION [None]
